FAERS Safety Report 25831397 (Version 1)
Quarter: 2025Q3

REPORT INFORMATION
  Report Type: Spontaneous
  Country: CN (occurrence: CN)
  Receive Date: 20250922
  Receipt Date: 20250922
  Transmission Date: 20251021
  Serious: Yes (Other)
  Sender: SANDOZ
  Company Number: CN-SANDOZ-SDZ2025CN067939

PATIENT
  Age: 12 Year
  Sex: Male

DRUGS (6)
  1. DASATINIB [Suspect]
     Active Substance: DASATINIB
     Indication: Chemotherapy
     Dosage: 100 MG, QD
     Route: 048
     Dates: start: 20220105, end: 20230203
  2. DASATINIB [Suspect]
     Active Substance: DASATINIB
     Dosage: 100 MG, QD
     Route: 048
     Dates: start: 20220204, end: 20220503
  3. DASATINIB [Suspect]
     Active Substance: DASATINIB
     Dosage: 70 MG, QD
     Route: 048
     Dates: start: 20220531, end: 20230521
  4. DASATINIB [Suspect]
     Active Substance: DASATINIB
     Route: 048
     Dates: start: 20230917, end: 20231017
  5. DASATINIB [Suspect]
     Active Substance: DASATINIB
     Route: 048
     Dates: start: 20230524, end: 20230822
  6. VORICONAZOLE [Suspect]
     Active Substance: VORICONAZOLE
     Indication: Infection
     Route: 065

REACTIONS (4)
  - Myelosuppression [Recovered/Resolved]
  - Pneumonia [Recovered/Resolved]
  - Hepatic function abnormal [Recovered/Resolved]
  - Drug interaction [Recovered/Resolved]
